FAERS Safety Report 6886130-3 (Version None)
Quarter: 2010Q3

REPORT INFORMATION
  Report Type: 
  Country: None (occurrence: None)
  Receive Date: 20100729
  Receipt Date: 20080702
  Transmission Date: 20110219
  Serious: No
  Sender: FDA-Public Use
  Company Number: US-PFIZER INC-2008056125

PATIENT
  Age: 60 Year

DRUGS (4)
  1. CELEBREX [Suspect]
     Route: 048
     Dates: end: 20080501
  2. MOTRIN [Suspect]
     Route: 048
     Dates: end: 20080501
  3. MOBIC [Suspect]
     Route: 048
     Dates: end: 20080501
  4. FLECTOR [Suspect]
     Indication: ARTHRALGIA
     Route: 061
     Dates: start: 20080501, end: 20080501

REACTIONS (4)
  - ABDOMINAL PAIN [None]
  - GASTROENTERITIS VIRAL [None]
  - NAUSEA [None]
  - VOMITING [None]
